FAERS Safety Report 26054084 (Version 1)
Quarter: 2025Q4

REPORT INFORMATION
  Report Type: Spontaneous
  Country: EU (occurrence: EU)
  Receive Date: 20251117
  Receipt Date: 20251117
  Transmission Date: 20260117
  Serious: Yes (Other)
  Sender: TEVA
  Company Number: None

PATIENT
  Age: 26 Year
  Sex: Female
  Weight: 57 kg

DRUGS (2)
  1. ISOTRETINOIN [Suspect]
     Active Substance: ISOTRETINOIN
     Indication: Acne
     Dosage: ISOTRETINOINA DIFA COOPER
     Route: 048
     Dates: start: 20250210, end: 20250922
  2. NUVARING [Concomitant]
     Active Substance: ETHINYL ESTRADIOL\ETONOGESTREL
     Indication: Product used for unknown indication
     Dosage: NUVARING BIRTH CONTROLRING FOR ONE MONTH BEFORE TAKING ISOTRETINOIN AND STILL BEING ADMINISTERED
     Route: 065
     Dates: start: 202501

REACTIONS (10)
  - Depressed mood [Recovering/Resolving]
  - Muscular weakness [Recovering/Resolving]
  - Dry skin [Recovering/Resolving]
  - Fatigue [Recovering/Resolving]
  - Myalgia [Recovering/Resolving]
  - Somnolence [Recovering/Resolving]
  - Anal fissure [Recovering/Resolving]
  - Back pain [Recovering/Resolving]
  - Lip dry [Recovering/Resolving]
  - Bone pain [Recovering/Resolving]

NARRATIVE: CASE EVENT DATE: 20250201
